FAERS Safety Report 23767306 (Version 2)
Quarter: 2024Q2

REPORT INFORMATION
  Report Type: Spontaneous
  Country: UA (occurrence: UA)
  Receive Date: 20240422
  Receipt Date: 20240422
  Transmission Date: 20240716
  Serious: Yes (Other)
  Sender: FDA-Public Use
  Company Number: UA-ABBVIE-5723505

PATIENT
  Age: 83 Year
  Sex: Female

DRUGS (2)
  1. VENETOCLAX [Suspect]
     Active Substance: VENETOCLAX
     Indication: Chronic lymphocytic leukaemia
     Route: 048
     Dates: start: 201906, end: 202104
  2. RITUXIMAB [Concomitant]
     Active Substance: RITUXIMAB
     Indication: Chronic lymphocytic leukaemia
     Dosage: DURATION TEXT: 14 DAYS
     Dates: start: 201906, end: 202104

REACTIONS (1)
  - Chronic lymphocytic leukaemia recurrent [Unknown]

NARRATIVE: CASE EVENT DATE: 20230801
